FAERS Safety Report 10911778 (Version 1)
Quarter: 2015Q1

REPORT INFORMATION
  Report Type: Spontaneous
  Country: US (occurrence: None)
  Receive Date: 20150309
  Receipt Date: 20150309
  Transmission Date: 20150721
  Serious: Yes (Death, Other)
  Sender: FDA-Public Use
  Company Number: PD-199

PATIENT

DRUGS (6)
  1. HYDROCODONE [Suspect]
     Active Substance: HYDROCODONE
     Indication: PAIN
  2. HYDROMORPHONE [Concomitant]
     Active Substance: HYDROMORPHONE
  3. ETHANOL [Concomitant]
     Active Substance: ALCOHOL
  4. HC [Concomitant]
  5. TRAZODONE [Concomitant]
     Active Substance: TRAZODONE HYDROCHLORIDE
  6. DIHYDROCODIENE [Concomitant]

REACTIONS (4)
  - Mental impairment [None]
  - Completed suicide [None]
  - Toxicity to various agents [None]
  - Lethargy [None]

NARRATIVE: CASE EVENT DATE: 2014
